FAERS Safety Report 4502574-9 (Version None)
Quarter: 2004Q4

REPORT INFORMATION
  Report Type: 
  Country: None (occurrence: None)
  Receive Date: 20041110
  Receipt Date: 20041105
  Transmission Date: 20050328
  Serious: Yes (Life-Threatening)
  Sender: FDA-Public Use
  Company Number: ENTC2004-0214

PATIENT
  Age: 65 Year
  Sex: Female

DRUGS (5)
  1. STALEVO 100 [Suspect]
     Dosage: ORAL
     Route: 048
     Dates: start: 20040927
  2. SINTROM [Concomitant]
  3. EXELON [Concomitant]
  4. AKINETON [Concomitant]
  5. STILNOX [Concomitant]

REACTIONS (8)
  - ECCHYMOSIS [None]
  - GINGIVAL BLEEDING [None]
  - HAEMATOCRIT DECREASED [None]
  - HAEMORRHAGE [None]
  - INTERNATIONAL NORMALISED RATIO INCREASED [None]
  - MELAENA [None]
  - MUCOSAL HAEMORRHAGE [None]
  - RHINORRHOEA [None]
